FAERS Safety Report 14336352 (Version 4)
Quarter: 2018Q4

REPORT INFORMATION
  Report Type: Spontaneous
  Country: JP (occurrence: JP)
  Receive Date: 20171229
  Receipt Date: 20181220
  Transmission Date: 20190204
  Serious: Yes (Life-Threatening, Hospitalization, Other)
  Sender: FDA-Public Use
  Company Number: JP-009507513-1712JPN002585J

PATIENT
  Age: 65 Year
  Sex: Male
  Weight: 57 kg

DRUGS (10)
  1. KEYTRUDA [Suspect]
     Active Substance: PEMBROLIZUMAB
     Indication: LUNG ADENOCARCINOMA STAGE IV
     Dosage: 200 MG, Q3W
     Route: 041
     Dates: start: 20171127, end: 20171127
  2. RANMARK [Concomitant]
     Active Substance: DENOSUMAB
     Indication: METASTASES TO BONE
     Dosage: 120 MILLIGRAM, QD
     Route: 058
     Dates: end: 20171206
  3. RANMARK [Concomitant]
     Active Substance: DENOSUMAB
     Dosage: 120 MILLIGRAM, QD
     Route: 058
     Dates: start: 20180110
  4. MECOBALAMIN [Concomitant]
     Active Substance: METHYLCOBALAMIN
     Indication: HYPOAESTHESIA
     Dosage: 500 MICROGRAM, TID
     Route: 048
  5. CLEANAL [Concomitant]
     Active Substance: FUDOSTEINE
     Indication: PRODUCTIVE COUGH
     Dosage: 200 MILLIGRAM, TID
     Route: 048
  6. AMBROXOL HYDROCHLORIDE [Concomitant]
     Active Substance: AMBROXOL HYDROCHLORIDE
     Indication: PRODUCTIVE COUGH
     Dosage: 15 MILLIGRAM, TID
     Route: 048
  7. DENOTAS [Concomitant]
     Active Substance: CALCIUM CARBONATE\CHOLECALCIFEROL\MAGNESIUM CARBONATE
     Indication: PROPHYLAXIS
     Dosage: UNK, QD
     Route: 048
  8. CLARITHROMYCIN. [Concomitant]
     Active Substance: CLARITHROMYCIN
     Indication: PRODUCTIVE COUGH
     Dosage: 200 MILLIGRAM, QD
     Route: 048
  9. DIHYDROCODEINE PHOSPHATE [Concomitant]
     Active Substance: DIHYDROCODEINE PHOSPHATE
     Indication: COUGH
     Dosage: 1 GRAM, BID
     Route: 048
  10. EPINASTINE. [Concomitant]
     Active Substance: EPINASTINE HYDROCHLORIDE
     Indication: RHINORRHOEA
     Dosage: 20 MILLIGRAM, QD
     Route: 048

REACTIONS (1)
  - Colitis ulcerative [Recovering/Resolving]

NARRATIVE: CASE EVENT DATE: 20171217
